FAERS Safety Report 17439767 (Version 1)
Quarter: 2020Q1

REPORT INFORMATION
  Report Type: Spontaneous
  Country: US (occurrence: US)
  Receive Date: 20200219
  Receipt Date: 20200219
  Transmission Date: 20200409
  Serious: Yes (Other)
  Sender: FDA-Public Use
  Company Number: None

PATIENT
  Sex: Male

DRUGS (4)
  1. HUMIRA [Suspect]
     Active Substance: ADALIMUMAB
     Dosage: ?          OTHER FREQUENCY:EVERY OTHER WEEK;?
     Route: 058
  2. ATORVASTATIN TAB 40MG [Concomitant]
     Dates: start: 20121217
  3. AMLODIPINE TAB 5MG [Concomitant]
     Dates: start: 20181217
  4. ASPIRIN LOW TAB 81MG EC [Concomitant]
     Dates: start: 20121217

REACTIONS (2)
  - Therapy cessation [None]
  - Influenza [None]
